FAERS Safety Report 20231769 (Version 1)
Quarter: 2021Q4

REPORT INFORMATION
  Report Type: Spontaneous
  Country: US (occurrence: US)
  Receive Date: 20211227
  Receipt Date: 20211227
  Transmission Date: 20220303
  Serious: No
  Sender: FDA-Public Use
  Company Number: US-AVEO ONCOLOGY-2021-AVEO-US003581

PATIENT

DRUGS (25)
  1. FOTIVDA [Suspect]
     Active Substance: TIVOZANIB HYDROCHLORIDE
     Indication: Renal cell carcinoma
     Dosage: 0.89 MG, DAILY PO 21 DAYS ON, 7 DAYS OFF
     Route: 048
     Dates: start: 20210827
  2. VITAMINS [Concomitant]
     Active Substance: VITAMINS
  3. COENZYME Q10 [Concomitant]
     Active Substance: DIETARY SUPPLEMENT\UBIDECARENONE
  4. LAMOTRIGINE [Concomitant]
     Active Substance: LAMOTRIGINE
     Dosage: UNK, DAILY,TAKE 1 TABLET BY MOUTH ONCE DAILY IN THE MORNING 1 +ONE HALF PNE DAILY IN THE EVENING
     Route: 048
  5. VALACYCLOVIR [Concomitant]
     Active Substance: VALACYCLOVIR HYDROCHLORIDE
     Dosage: 500 MG, DAILY, TAKE 1 TABLET BY MOUTH TWICE DAILY
     Route: 048
  6. VITAMIN B COMPLEX [Concomitant]
     Active Substance: CYANOCOBALAMIN\DEXPANTHENOL\NIACINAMIDE\PYRIDOXINE HYDROCHLORIDE\RIBOFLAVIN 5^-PHOSPHATE SODIUM\THIA
  7. VITAMIN C [Concomitant]
     Active Substance: ASCORBIC ACID
     Dosage: UNK, DAILY
  8. VITAMIN E [Concomitant]
     Active Substance: .ALPHA.-TOCOPHEROL
  9. ZOFRAN [Concomitant]
     Active Substance: ONDANSETRON HYDROCHLORIDE
     Dosage: 4 MG, TAKE 2 TABLETS EVERY 8 HOURS BY ORAL ROUTE AS NEEDED
     Route: 048
  10. CABOMETYX [Concomitant]
     Active Substance: CABOZANTINIB S-MALATE
     Dosage: 60 MG, DAILY TAKE 1 TABLET EVERY DAY BY ORAL ROUTE
     Route: 048
  11. LACTASE [Concomitant]
     Active Substance: LACTASE
     Dosage: 3000 UNK PRN ABOUT Q 1-2 DAYS
     Route: 048
  12. MINERALS\VITAMINS [Concomitant]
     Active Substance: MINERALS\VITAMINS
  13. LIDOCAINE AND PRILOCAINE [Concomitant]
     Active Substance: LIDOCAINE\PRILOCAINE
     Dosage: 2.5 UNK, APPLY 2 HOURS PRIOR
  14. VITAMINS [Concomitant]
     Active Substance: VITAMINS
     Dosage: UNK, DAILY, TAKE 1 TABLET BY MOUTH DAILY
     Route: 048
  15. NICOTINE [Concomitant]
     Active Substance: NICOTINE
  16. OMEGA 3 [Concomitant]
     Active Substance: CAPSAICIN
     Dosage: UNK, DAILY
  17. ONDANSETRON HCL [Concomitant]
     Active Substance: ONDANSETRON HYDROCHLORIDE
     Dosage: 8 MG, TAKE 1 TABLET BY MOUHT EVERY 8 HOURS AS NEEDED
     Route: 048
  18. PEMBROLIZUMAB [Concomitant]
     Active Substance: PEMBROLIZUMAB
     Dosage: Q3 WEEKS
  19. SF 5000 PLUS [Concomitant]
     Active Substance: SODIUM FLUORIDE
     Dosage: 1.1 UNK, DAILY, USE 1 SMALL AMOUNT DAILY TWICE DAILY, DO NOT RINSE EAT OR DRINK FOR 30 MINUTES AFTER
  20. ACETAMINOPHEN [Concomitant]
     Active Substance: ACETAMINOPHEN
     Dosage: 500 MG
  21. LAMICTAL [Concomitant]
     Active Substance: LAMOTRIGINE
     Dosage: 100 MG, DAILY, PO EVERY MORNING AND 150 MG EVERY EVENING
  22. CLARITIN [Concomitant]
     Active Substance: LORATADINE
  23. INLYTA [Concomitant]
     Active Substance: AXITINIB
     Dosage: 5 MG, DAILY TAKE 5MG BY MOUTH 2 TIMES DAILY FOR CANCER
     Route: 048
  24. GABAPENTIN [Concomitant]
     Active Substance: GABAPENTIN
     Dosage: 300 MG DAILY, TAKE ONE CAPSULE BY MOUTH NIGHTLY AT BEDTIME FOR NEUROPHATIC PAIN
     Route: 048
  25. VALACYCLOVIR [Concomitant]
     Active Substance: VALACYCLOVIR HYDROCHLORIDE
     Dosage: 1 G, DAILY, 1 G TABLET TAKE 1 TABLET BY MOUTH 3 TIMES DAILY FOR HERPES ZOSTER

REACTIONS (5)
  - Fatigue [Unknown]
  - Abdominal discomfort [Unknown]
  - Asthenia [Unknown]
  - Metastases to liver [Unknown]
  - Renal cancer recurrent [Unknown]
